FAERS Safety Report 8155747-0 (Version None)
Quarter: 2012Q1

REPORT INFORMATION
  Report Type: 
  Country: None (occurrence: None)
  Receive Date: 20120222
  Receipt Date: 20120217
  Transmission Date: 20120608
  Serious: Yes (Hospitalization)
  Sender: FDA-Public Use
  Company Number: US-AMGEN-USASP2012010764

PATIENT
  Sex: Female

DRUGS (6)
  1. PROLIA [Suspect]
     Indication: OSTEOPOROSIS POSTMENOPAUSAL
     Dates: start: 20110901
  2. CENTRUM SILVER                     /01292501/ [Concomitant]
     Dosage: UNK
  3. CALCIUM [Concomitant]
     Dosage: UNK
  4. MULTI-VITAMINS [Concomitant]
     Dates: end: 20120101
  5. VITAMINS NOS [Concomitant]
     Dosage: UNK
     Dates: end: 20120101
  6. OSTEO BI-FLEX [Concomitant]
     Dosage: UNK

REACTIONS (2)
  - THROMBOSIS [None]
  - ATRIAL FIBRILLATION [None]
